FAERS Safety Report 16437551 (Version 1)
Quarter: 2019Q2

REPORT INFORMATION
  Report Type: Spontaneous
  Country: NL (occurrence: NL)
  Receive Date: 20190615
  Receipt Date: 20190615
  Transmission Date: 20190711
  Serious: Yes (Other)
  Sender: FDA-Public Use
  Company Number: NL-IPSEN BIOPHARMACEUTICALS, INC.-2019-09736

PATIENT
  Sex: Male

DRUGS (2)
  1. SOMATULINE AUTOSOLUTION 90MG [Suspect]
     Active Substance: LANREOTIDE ACETATE
     Indication: ACROMEGALY
     Route: 065
     Dates: start: 20181217, end: 20181217
  2. SOMATULINE AUTOSOLUTION 90MG [Suspect]
     Active Substance: LANREOTIDE ACETATE
     Route: 065
     Dates: start: 20190114, end: 20190114

REACTIONS (1)
  - Depression [Recovered/Resolved]
